FAERS Safety Report 10743803 (Version 1)
Quarter: 2015Q1

REPORT INFORMATION
  Report Type: Spontaneous
  Country: CA (occurrence: CA)
  Receive Date: 20150128
  Receipt Date: 20150128
  Transmission Date: 20150721
  Serious: Yes (Hospitalization)
  Sender: FDA-Public Use
  Company Number: CA-ROCHE-1526978

PATIENT
  Age: 62 Year
  Sex: Male

DRUGS (3)
  1. PEGASYS [Suspect]
     Active Substance: PEGINTERFERON ALFA-2A
     Indication: CHRONIC HEPATITIS C
     Route: 058
  2. RIBAVIRIN. [Suspect]
     Active Substance: RIBAVIRIN
     Indication: CHRONIC HEPATITIS C
     Route: 048
  3. INCIVEK [Suspect]
     Active Substance: TELAPREVIR
     Indication: CHRONIC HEPATITIS C
     Route: 048

REACTIONS (3)
  - Bile duct obstruction [Recovered/Resolved]
  - Urosepsis [Recovered/Resolved]
  - Blood bilirubin increased [Recovered/Resolved]
